FAERS Safety Report 4626500-7 (Version None)
Quarter: 2005Q2

REPORT INFORMATION
  Report Type: 
  Country: None (occurrence: None)
  Receive Date: 20050404
  Receipt Date: 20041018
  Transmission Date: 20051028
  Serious: Yes (Hospitalization, Disabling, Other)
  Sender: FDA-Public Use
  Company Number: US-MERCK-0410USA02696

PATIENT
  Age: 52 Year
  Sex: Male

DRUGS (2)
  1. VIOXX [Suspect]
     Indication: BACK PAIN
     Route: 048
     Dates: start: 20000101
  2. VIOXX [Suspect]
     Indication: NECK PAIN
     Route: 048
     Dates: start: 20000101

REACTIONS (8)
  - BRONCHITIS CHRONIC [None]
  - CORONARY ARTERY DISEASE [None]
  - DEPRESSION [None]
  - DISABILITY [None]
  - MYOCARDIAL INFARCTION [None]
  - PERICARDITIS [None]
  - STENT OCCLUSION [None]
  - VENTRICULAR DYSFUNCTION [None]
